FAERS Safety Report 8558651 (Version 6)
Quarter: 2012Q4

REPORT INFORMATION
  Report Type: Report from Study
  Country: MY (occurrence: MY)
  Receive Date: 20120511
  Receipt Date: 20121204
  Transmission Date: 20130627
  Serious: Yes (Life-Threatening, Hospitalization, Disabling, Other)
  Sender: FDA-Public Use
  Company Number: MY-JNJFOC-20120410316

PATIENT
  Age: 60 Year
  Sex: Male
  Weight: 62 kg

DRUGS (11)
  1. ABIRATERONE ACETATE [Suspect]
     Route: 048
  2. ABIRATERONE ACETATE [Suspect]
     Indication: PROSTATE CANCER METASTATIC
     Route: 048
     Dates: start: 20120412
  3. PREDNISOLONE [Suspect]
     Indication: PROSTATE CANCER METASTATIC
     Route: 048
     Dates: start: 20120412
  4. ANTIDIABETIC [Concomitant]
     Indication: DIABETES MELLITUS
     Route: 048
  5. GLUCOSE [Concomitant]
     Indication: HYPOGLYCAEMIA
     Route: 042
     Dates: start: 20120421, end: 20120421
  6. JANUVIA [Concomitant]
     Indication: HYPOGLYCAEMIA
     Route: 065
     Dates: start: 20120421, end: 20120427
  7. DIAMICRON [Concomitant]
     Indication: HYPOGLYCAEMIA
     Route: 065
     Dates: start: 20120421, end: 20120427
  8. PACKED RED BLOOD CELLS [Concomitant]
     Indication: ANAEMIA
     Route: 065
     Dates: start: 20120422, end: 20120423
  9. CEDAX [Concomitant]
     Indication: HYPOGLYCAEMIA
     Route: 065
     Dates: start: 20120421, end: 20120427
  10. INSULINE NOVOMIX [Concomitant]
     Indication: HYPOGLYCAEMIA
     Route: 065
     Dates: start: 20120421, end: 20120427
  11. GOSERELIN [Concomitant]
     Indication: HORMONE THERAPY
     Route: 065
     Dates: start: 2009

REACTIONS (4)
  - Anaemia [Recovered/Resolved]
  - Hypoglycaemia [Recovered/Resolved]
  - Hypokalaemia [Recovered/Resolved]
  - Lethargy [Recovering/Resolving]
